FAERS Safety Report 8203876-5 (Version None)
Quarter: 2012Q1

REPORT INFORMATION
  Report Type: 
  Country: None (occurrence: None)
  Receive Date: 20120313
  Receipt Date: 20120124
  Transmission Date: 20120608
  Serious: Yes (Hospitalization)
  Sender: FDA-Public Use
  Company Number: CH-ELI_LILLY_AND_COMPANY-CH201112005060

PATIENT
  Age: 71 Year
  Sex: Female

DRUGS (12)
  1. CISPLATIN [Suspect]
     Indication: NON-SMALL CELL LUNG CANCER
     Dosage: 112 MG, UNK
     Route: 042
     Dates: start: 20111111
  2. LEVOTHYROXINE SODIUM [Concomitant]
     Dosage: 1 MG, UNK
     Route: 048
  3. ACETAMINOPHEN [Concomitant]
     Dosage: 4 G, UNK
     Route: 048
  4. PERINDOPRIL ERBUMINE [Concomitant]
     Dosage: UNK
     Route: 048
  5. DEXAMETHASONE [Concomitant]
  6. MORPHINE [Concomitant]
     Dosage: 50 DF, TID
  7. FOLIC ACID [Concomitant]
  8. AMLODIPINE BESYLATE [Concomitant]
     Dosage: UNK
     Route: 048
  9. MORPHINE [Concomitant]
     Dosage: 30 DF, TID
  10. VITAMIN B-12 [Concomitant]
  11. BEVACIZUMAB [Suspect]
     Indication: NON-SMALL CELL LUNG CANCER
     Dosage: 350 MG, UNK
     Route: 042
     Dates: start: 20111111
  12. PEMETREXED [Suspect]
     Indication: NON-SMALL CELL LUNG CANCER
     Dosage: 750 MG, UNK
     Route: 042
     Dates: start: 20111111

REACTIONS (3)
  - NEUTROPHIL COUNT DECREASED [None]
  - FATIGUE [None]
  - PLATELET COUNT DECREASED [None]
